FAERS Safety Report 9955196 (Version 2)
Quarter: 2014Q1

REPORT INFORMATION
  Report Type: Spontaneous
  Country: US (occurrence: US)
  Receive Date: 20140304
  Receipt Date: 20140304
  Transmission Date: 20141002
  Serious: Yes (Other)
  Sender: FDA-Public Use
  Company Number: US-US-EMD SERONO, INC.-231544J07USA

PATIENT
  Age: 40 Year
  Sex: Female
  Weight: 54 kg

DRUGS (6)
  1. REBIF [Suspect]
     Indication: MULTIPLE SCLEROSIS
     Route: 058
     Dates: start: 20071103
  2. REBIF [Suspect]
     Route: 058
     Dates: start: 200712, end: 200712
  3. REBIF [Suspect]
     Route: 058
     Dates: start: 200712, end: 2008
  4. TYLENOL [Concomitant]
     Indication: INFLUENZA LIKE ILLNESS
     Route: 065
  5. IBUPROFEN [Concomitant]
     Indication: INFLUENZA LIKE ILLNESS
     Route: 065
  6. ALEVE [Concomitant]
     Indication: INFLUENZA LIKE ILLNESS
     Route: 065

REACTIONS (2)
  - Benign neoplasm of skin [Recovered/Resolved]
  - Anxiety [Recovered/Resolved]
